FAERS Safety Report 6359336-X (Version None)
Quarter: 2009Q3

REPORT INFORMATION
  Report Type: 
  Country: None (occurrence: None)
  Receive Date: 20090917
  Receipt Date: 20090914
  Transmission Date: 20100115
  Serious: Yes (Hospitalization)
  Sender: FDA-Public Use
  Company Number: GB-BRISTOL-MYERS SQUIBB COMPANY-14746598

PATIENT
  Age: 96 Year
  Sex: Male
  Weight: 87 kg

DRUGS (5)
  1. APROVEL TABS 150 MG [Suspect]
     Indication: HYPERTENSION
     Dosage: INITIALLY 75 MG/D INCREAS TO 150MG/D:MAY-2008 THEN TO 300MG DAILY TOOK TWO 75MG TAB DAILY
     Route: 048
     Dates: start: 20030101
  2. ASPIRIN [Concomitant]
  3. GLICLAZIDE [Concomitant]
  4. METFORMIN HCL [Concomitant]
  5. SIMVASTATIN [Concomitant]

REACTIONS (4)
  - BLOOD PRESSURE DECREASED [None]
  - COMA [None]
  - FALL [None]
  - OVERDOSE [None]
